FAERS Safety Report 6784856-3 (Version None)
Quarter: 2010Q2

REPORT INFORMATION
  Report Type: 
  Country: None (occurrence: None)
  Receive Date: 20100622
  Receipt Date: 20100611
  Transmission Date: 20101027
  Serious: Yes (Hospitalization)
  Sender: FDA-Public Use
  Company Number: US-JNJFOC-20100509788

PATIENT
  Age: 7 Year
  Sex: Female
  Weight: 29.48 kg

DRUGS (2)
  1. CHILDREN'S MOTRIN [Suspect]
     Route: 048
  2. CHILDREN'S MOTRIN [Suspect]
     Indication: HEADACHE
     Dosage: EVERY 6 HOURS, THEN ^FULL BOTTLE AND 3/4 OF ANOTHER BOTTLE^
     Route: 048

REACTIONS (4)
  - ACCIDENTAL DRUG INTAKE BY CHILD [None]
  - ACCIDENTAL OVERDOSE [None]
  - DYSPNOEA [None]
  - PRODUCT QUALITY ISSUE [None]
